FAERS Safety Report 11123881 (Version 1)
Quarter: 2015Q2

REPORT INFORMATION
  Report Type: Spontaneous
  Country: US (occurrence: US)
  Receive Date: 20150520
  Receipt Date: 20150520
  Transmission Date: 20150821
  Serious: No
  Sender: FDA-Public Use
  Company Number: US-TEVA-527829USA

PATIENT
  Age: 49 Year
  Sex: Female
  Weight: 157.54 kg

DRUGS (3)
  1. NABUMETONE. [Suspect]
     Active Substance: NABUMETONE
  2. NABUMETONE. [Suspect]
     Active Substance: NABUMETONE
     Dosage: 1 DOSAGE FORMS DAILY;
  3. LYRICA [Suspect]
     Active Substance: PREGABALIN
     Indication: NEURALGIA
     Dosage: 150 MILLIGRAM DAILY;
     Route: 048
     Dates: end: 20141121

REACTIONS (1)
  - Back pain [Not Recovered/Not Resolved]
